FAERS Safety Report 10659281 (Version 1)
Quarter: 2014Q4

REPORT INFORMATION
  Report Type: Spontaneous
  Country: JP (occurrence: JP)
  Receive Date: 20141217
  Receipt Date: 20141217
  Transmission Date: 20150529
  Serious: Yes (Death, Hospitalization)
  Sender: FDA-Public Use
  Company Number: PHHY2014JP163970

PATIENT
  Age: 60 Year
  Sex: Female

DRUGS (1)
  1. DOXORUBICIN [Suspect]
     Active Substance: DOXORUBICIN
     Indication: BREAST CANCER
     Route: 065

REACTIONS (7)
  - Sepsis [Fatal]
  - Pericardial effusion [Unknown]
  - Cardiomyopathy [Unknown]
  - Cardiac disorder [Unknown]
  - Tricuspid valve incompetence [Unknown]
  - Cardiac failure [Unknown]
  - Mitral valve incompetence [Unknown]

NARRATIVE: CASE EVENT DATE: 201211
